FAERS Safety Report 7052051-9 (Version None)
Quarter: 2010Q4

REPORT INFORMATION
  Report Type: 
  Country: None (occurrence: None)
  Receive Date: 20101018
  Receipt Date: 20101018
  Transmission Date: 20110411
  Serious: Yes (Hospitalization)
  Sender: FDA-Public Use
  Company Number: None

PATIENT
  Sex: Male
  Weight: 67 kg

DRUGS (4)
  1. FLUOROURACIL [Suspect]
     Dosage: 15896 MG
     Dates: end: 20100922
  2. BEVACIZUMAB (RHUMAB VEGF) [Suspect]
     Dosage: 704 MG
     Dates: end: 20100922
  3. LEUCOVORIN CALCIUM [Suspect]
     Dosage: 2864 MG
     Dates: end: 20100922
  4. ELOXATIN [Suspect]
     Dosage: 464 MG
     Dates: end: 20100922

REACTIONS (4)
  - COLITIS [None]
  - DIARRHOEA [None]
  - NAUSEA [None]
  - VOMITING [None]
